FAERS Safety Report 9626612 (Version 2)
Quarter: 2013Q4

REPORT INFORMATION
  Report Type: Spontaneous
  Country: CA (occurrence: CA)
  Receive Date: 20131016
  Receipt Date: 20131016
  Transmission Date: 20140711
  Serious: Yes (Hospitalization)
  Sender: FDA-Public Use
  Company Number: CA-SA-CERZ-1003160

PATIENT
  Age: 16 Year
  Sex: Female
  Weight: 66.9 kg

DRUGS (10)
  1. CEREZYME [Suspect]
     Indication: GAUCHER^S DISEASE
     Dosage: 2000 (28 U/KG), Q2W DOSE:29.8 UNIT(S)/KILOGRAM BODYWEIGHT
     Route: 042
     Dates: start: 200005
  2. LAMOTRIGINE [Concomitant]
     Indication: CONVULSION
     Dosage: 200 MG, BID
     Route: 048
     Dates: start: 201302
  3. LAMOTRIGINE [Concomitant]
     Indication: CONVULSION
     Route: 048
     Dates: start: 201302
  4. CLOBAZAM [Concomitant]
     Indication: CONVULSION
     Dosage: 20 MG, TID
     Route: 048
     Dates: start: 201209
  5. MILONTIN [Concomitant]
     Dosage: 6 MG, UNK
     Route: 048
     Dates: start: 2008
  6. ASCORBIC ACID [Concomitant]
     Dosage: 1000 MG, QD
     Route: 048
     Dates: start: 2010
  7. ERGOCALCIFEROL [Concomitant]
     Dosage: 400 U, QD DOSE:400 UNIT(S)
     Route: 048
     Dates: start: 2010
  8. FOLIC ACID [Concomitant]
     Dosage: 5 MG, QD
     Route: 048
     Dates: start: 2012
  9. MULTIVITAMINS [Concomitant]
     Route: 048
     Dates: start: 2010
  10. VALPROATE SEMISODIUM [Concomitant]
     Indication: CONVULSION
     Route: 048
     Dates: start: 20130202

REACTIONS (1)
  - Convulsion [Not Recovered/Not Resolved]
